FAERS Safety Report 8076755-4 (Version None)
Quarter: 2011Q4

REPORT INFORMATION
  Report Type: 
  Country: None (occurrence: None)
  Receive Date: 20111221
  Receipt Date: 20110304
  Transmission Date: 20120403
  Serious: Yes (Life-Threatening, Hospitalization)
  Sender: FDA-Public Use
  Company Number: PHHY2011US14004

PATIENT
  Age: 72 Year
  Sex: Male
  Weight: 82.4 kg

DRUGS (2)
  1. EXJADE [Suspect]
     Indication: HAEMOCHROMATOSIS
     Dosage: 2000 MG DAILY, ORAL
     Route: 048
     Dates: start: 20090801, end: 20091224
  2. EXJADE [Suspect]
     Indication: MYELODYSPLASTIC SYNDROME
     Dosage: 2000 MG DAILY, ORAL
     Route: 048
     Dates: start: 20090801, end: 20091224

REACTIONS (1)
  - GASTROINTESTINAL HAEMORRHAGE [None]
